FAERS Safety Report 12399553 (Version 1)
Quarter: 2016Q2

REPORT INFORMATION
  Report Type: Spontaneous
  Country: US (occurrence: US)
  Receive Date: 20160524
  Receipt Date: 20160524
  Transmission Date: 20160815
  Serious: No
  Sender: FDA-Public Use
  Company Number: US-PERNIX THERAPEUTICS-2016PT000072

PATIENT

DRUGS (12)
  1. ENAPRIL [Concomitant]
     Active Substance: ENALAPRIL
     Dosage: 20 MG, EVERY 2 DAYS
     Route: 048
     Dates: start: 20151221
  2. METOPROLOL TARTRATE. [Concomitant]
     Active Substance: METOPROLOL TARTRATE
     Dosage: 1 TABLET, TWICE DAILY
     Route: 048
     Dates: start: 20150730, end: 20160107
  3. LYRICA [Concomitant]
     Active Substance: PREGABALIN
     Dosage: 150 MG, TWICE DAILY
     Route: 048
     Dates: start: 20150618, end: 20150618
  4. HYDROCODONE [Suspect]
     Active Substance: HYDROCODONE
     Indication: BACK PAIN
     Dosage: 10/325 MG, EVERY 4-6 HRS AS NEEDED FOR PAIN
     Route: 048
     Dates: start: 20151221
  5. ACETAZOLAMIDE. [Concomitant]
     Active Substance: ACETAZOLAMIDE
     Dosage: 250 MG, DAILY
     Route: 048
     Dates: start: 20150612
  6. VITAMIN D2 [Concomitant]
     Active Substance: ERGOCALCIFEROL
     Dosage: 50000 UNITS, WEEKLY
     Route: 048
     Dates: start: 20150907
  7. POTASSIUM CHLORIDE. [Concomitant]
     Active Substance: POTASSIUM CHLORIDE
     Dosage: 8 MEQ, TWICE DAILY WITH FOOD
     Route: 048
     Dates: start: 20151029
  8. AMBIEN [Concomitant]
     Active Substance: ZOLPIDEM TARTRATE
     Dosage: 10 MG, DAILY AT BEDTIME AS NEEDED
     Route: 048
     Dates: start: 20151231, end: 20160128
  9. AMLODIPINE [Concomitant]
     Active Substance: AMLODIPINE BESYLATE
     Dosage: 2.5 MG, DAILY
     Route: 048
     Dates: start: 20151123
  10. ZOFRAN [Concomitant]
     Active Substance: ONDANSETRON HYDROCHLORIDE
     Dosage: 4 MG, 3 TIMES DAILY
     Route: 048
     Dates: start: 20150625, end: 20160107
  11. LASIX [Concomitant]
     Active Substance: FUROSEMIDE
     Dosage: TAKE 1/2 OF PILL ON TUESDAY, THURSDAY, SATURDAY AND ONE PILL ON MONDAY, WEDNESDAY, FRIDAY AND SUNDAY
     Dates: start: 20151201
  12. LOVASTATIN. [Concomitant]
     Active Substance: LOVASTATIN
     Dosage: 20 MG, DAILY WITH THE EVENING MEAL
     Route: 048
     Dates: start: 20151215

REACTIONS (6)
  - Urinary incontinence [Unknown]
  - Nasal congestion [Unknown]
  - Micturition urgency [Unknown]
  - Back pain [Unknown]
  - Drug ineffective [Unknown]
  - Depression [Unknown]
